FAERS Safety Report 8628246 (Version 12)
Quarter: 2014Q1

REPORT INFORMATION
  Report Type: Report from Study
  Country: DE (occurrence: DE)
  Receive Date: 20120621
  Receipt Date: 20140203
  Transmission Date: 20141002
  Serious: Yes (Hospitalization, Other)
  Sender: FDA-Public Use
  Company Number: DE-ROCHE-1066993

PATIENT
  Age: 61 Year
  Sex: Female
  Weight: 64 kg

DRUGS (10)
  1. VEMURAFENIB [Suspect]
     Indication: MALIGNANT MELANOMA
     Dosage: TEMPORARILY INTERRUPTED ON 25/APR/2012
     Route: 048
     Dates: start: 20120309, end: 20120425
  2. VEMURAFENIB [Suspect]
     Dosage: DOSE REDUCED
     Route: 048
     Dates: start: 20120508
  3. VEMURAFENIB [Suspect]
     Dosage: THERAPY RESTARTED
     Route: 048
     Dates: start: 20120523
  4. DOCITON [Concomitant]
     Route: 065
  5. THYRONAJOD [Concomitant]
     Route: 065
  6. INSUMAN RAPID [Concomitant]
     Route: 065
     Dates: start: 20120131
  7. AMLODIPIN [Concomitant]
     Route: 065
  8. INSUMAN BASAL [Concomitant]
     Route: 065
     Dates: start: 20120131
  9. ADVANTAN OINTMENT [Concomitant]
     Route: 065
     Dates: start: 20120420
  10. IBUPROFEN [Concomitant]
     Route: 065
     Dates: start: 2008

REACTIONS (2)
  - Drug eruption [Recovered/Resolved]
  - Squamous cell carcinoma of skin [Recovered/Resolved]
